FAERS Safety Report 18338578 (Version 2)
Quarter: 2020Q4

REPORT INFORMATION
  Report Type: Spontaneous
  Country: US (occurrence: US)
  Receive Date: 20201002
  Receipt Date: 20201009
  Transmission Date: 20210113
  Serious: Yes (Other)
  Sender: FDA-Public Use
  Company Number: US-ASTRAZENECA-2020SF26455

PATIENT
  Age: 880 Month
  Sex: Female
  Weight: 38.1 kg

DRUGS (4)
  1. TAGRISSO [Suspect]
     Active Substance: OSIMERTINIB
     Indication: NON-SMALL CELL LUNG CANCER
     Route: 048
     Dates: start: 20201001
  2. TAGRISSO [Suspect]
     Active Substance: OSIMERTINIB
     Indication: NON-SMALL CELL LUNG CANCER
     Route: 048
     Dates: start: 20190401, end: 20200919
  3. OXYCODONE [Concomitant]
     Active Substance: OXYCODONE
     Indication: PAIN
     Dosage: 5.0MG AS REQUIRED
     Route: 048
     Dates: start: 20200818
  4. ALEVE [Concomitant]
     Active Substance: NAPROXEN SODIUM
     Indication: PAIN
     Dosage: 220.0MG AS REQUIRED
     Route: 048

REACTIONS (12)
  - Taste disorder [Unknown]
  - Metastases to spine [Unknown]
  - Decreased appetite [Unknown]
  - Musculoskeletal stiffness [Recovering/Resolving]
  - Abdominal pain upper [Recovered/Resolved]
  - Gait disturbance [Unknown]
  - Nail disorder [Unknown]
  - Pain [Recovering/Resolving]
  - Diarrhoea [Recovered/Resolved]
  - Eating disorder [Unknown]
  - Back pain [Unknown]
  - Rash [Recovered/Resolved]

NARRATIVE: CASE EVENT DATE: 201911
